FAERS Safety Report 22308493 (Version 1)
Quarter: 2023Q2

REPORT INFORMATION
  Report Type: Spontaneous
  Country: US (occurrence: None)
  Receive Date: 20230510
  Receipt Date: 20230510
  Transmission Date: 20230722
  Serious: Yes (Death, Hospitalization)
  Sender: FDA-Public Use
  Company Number: None

PATIENT
  Age: 77 Year
  Sex: Female

DRUGS (6)
  1. AMBRISENTAN [Suspect]
     Active Substance: AMBRISENTAN
     Indication: Pulmonary hypertension
     Dosage: FREQUENCY : DAILY;?
     Route: 048
     Dates: start: 20170125, end: 20230318
  2. TREPROSTINIL [Concomitant]
     Active Substance: TREPROSTINIL
  3. FAMOTIDINE [Concomitant]
     Active Substance: FAMOTIDINE
  4. OSIMERTINIB [Concomitant]
     Active Substance: OSIMERTINIB
  5. FUROSEMIDE [Concomitant]
     Active Substance: FUROSEMIDE
  6. ROSUVASTATIN [Concomitant]
     Active Substance: ROSUVASTATIN

REACTIONS (3)
  - Lung cancer metastatic [None]
  - Dyspnoea exertional [None]
  - Respiratory failure [None]

NARRATIVE: CASE EVENT DATE: 20230307
